FAERS Safety Report 10219115 (Version 2)
Quarter: 2016Q2

REPORT INFORMATION
  Report Type: Spontaneous
  Country: US (occurrence: US)
  Receive Date: 20140605
  Receipt Date: 20160525
  Transmission Date: 20160815
  Serious: Yes (Death, Life-Threatening, Hospitalization, Other)
  Sender: FDA-Public Use
  Company Number: US-009507513-1405USA015502

PATIENT
  Sex: Male

DRUGS (3)
  1. JANUVIA [Suspect]
     Active Substance: SITAGLIPTIN PHOSPHATE
     Indication: TYPE 2 DIABETES MELLITUS
     Dosage: 50 MG, QD
     Route: 048
     Dates: start: 20140520
  2. JANUMET [Suspect]
     Active Substance: METFORMIN HYDROCHLORIDE\SITAGLIPTIN PHOSPHATE
     Indication: TYPE 2 DIABETES MELLITUS
     Dosage: 50/1000MG, BID
     Route: 048
     Dates: start: 20121126, end: 20130224
  3. JANUMET [Suspect]
     Active Substance: METFORMIN HYDROCHLORIDE\SITAGLIPTIN PHOSPHATE
     Dosage: 50/1000 MG, BID
     Route: 048
     Dates: start: 20130516

REACTIONS (25)
  - Pancreatic carcinoma metastatic [Unknown]
  - Pulmonary congestion [Unknown]
  - Diabetic neuropathy [Unknown]
  - Orthostatic hypotension [Unknown]
  - Inspiratory capacity decreased [Unknown]
  - Leukocytosis [Unknown]
  - Syncope [Unknown]
  - Nocturia [Unknown]
  - Laboratory test abnormal [Unknown]
  - Adrenal adenoma [Unknown]
  - Benign prostatic hyperplasia [Unknown]
  - Tachycardia [Unknown]
  - Syncope [Unknown]
  - Pleural effusion [Unknown]
  - Tobacco abuse [Unknown]
  - Head injury [Unknown]
  - Sleep apnoea syndrome [Unknown]
  - Hypercalcaemia [Unknown]
  - Nephropathy [Recovered/Resolved]
  - Death [Fatal]
  - Blood alkaline phosphatase increased [Unknown]
  - Normochromic normocytic anaemia [Unknown]
  - Lung consolidation [Unknown]
  - Cardiomegaly [Unknown]
  - Atelectasis [Unknown]

NARRATIVE: CASE EVENT DATE: 201404
